FAERS Safety Report 16193451 (Version 1)
Quarter: 2019Q2

REPORT INFORMATION
  Report Type: Spontaneous
  Country: IE (occurrence: IE)
  Receive Date: 20190413
  Receipt Date: 20190413
  Transmission Date: 20190711
  Serious: Yes (Other)
  Sender: FDA-Public Use
  Company Number: IE-AMGEN-IRLSP2018187646

PATIENT
  Age: 59 Year
  Sex: Female

DRUGS (1)
  1. ENBREL [Suspect]
     Active Substance: ETANERCEPT
     Indication: RHEUMATOID ARTHRITIS
     Dosage: UNK UNK, QWK
     Route: 058

REACTIONS (2)
  - Ligament sprain [Unknown]
  - Ankle fracture [Unknown]

NARRATIVE: CASE EVENT DATE: 20181125
